FAERS Safety Report 20028273 (Version 2)
Quarter: 2021Q4

REPORT INFORMATION
  Report Type: Spontaneous
  Country: US (occurrence: US)
  Receive Date: 20211103
  Receipt Date: 20211124
  Transmission Date: 20220303
  Serious: Yes (Other)
  Sender: FDA-Public Use
  Company Number: ALC2021US005905

PATIENT
  Age: 58 Year
  Sex: Female

DRUGS (13)
  1. BSS [Suspect]
     Active Substance: CALCIUM CHLORIDE\MAGNESIUM CHLORIDE\POTASSIUM CHLORIDE\SODIUM ACETATE\SODIUM CHLORIDE\SODIUM CITRATE
     Indication: Cataract operation
     Dosage: UNK
     Route: 065
  2. ALCAINE [Suspect]
     Active Substance: PROPARACAINE HYDROCHLORIDE
     Indication: Preoperative care
     Dosage: UNK
     Route: 065
  3. POVIDONE-IODINE [Suspect]
     Active Substance: POVIDONE-IODINE
     Indication: Preoperative care
     Route: 065
  4. POVIDONE-IODINE [Suspect]
     Active Substance: POVIDONE-IODINE
     Indication: Surgery
     Route: 058
  5. POVIDONE-IODINE [Suspect]
     Active Substance: POVIDONE-IODINE
     Dosage: UNK
     Route: 061
  6. LIDOCAINE [Suspect]
     Active Substance: LIDOCAINE
     Indication: Preoperative care
     Route: 065
  7. BROMSITE [Suspect]
     Active Substance: BROMFENAC SODIUM
     Indication: Preoperative care
     Route: 065
  8. BROMSITE [Concomitant]
     Active Substance: BROMFENAC SODIUM
     Indication: Postoperative care
     Dosage: DAILY 4 WEEKS
     Route: 065
  9. PREDNISOLONE [Concomitant]
     Active Substance: PREDNISOLONE
     Indication: Postoperative care
     Dosage: UNK TID 4 WEEKS
     Route: 016
  10. CEFUROXIME [Concomitant]
     Active Substance: CEFUROXIME
     Indication: Postoperative care
     Dosage: 1 MG
     Route: 065
  11. MYDRIACYL [Concomitant]
     Active Substance: TROPICAMIDE
     Indication: Product used for unknown indication
     Route: 065
  12. NEOSYNEPHRINE [Concomitant]
     Active Substance: PHENYLEPHRINE HYDROCHLORIDE
     Indication: Product used for unknown indication
     Route: 065
  13. BROMSITE [Concomitant]
     Active Substance: BROMFENAC SODIUM
     Indication: Product used for unknown indication
     Route: 065

REACTIONS (7)
  - Endophthalmitis [Recovered/Resolved]
  - Vitritis [Recovered/Resolved]
  - Hypopyon [Recovered/Resolved]
  - Conjunctivitis [Recovered/Resolved]
  - Vision blurred [Recovered/Resolved]
  - Eye pain [Recovered/Resolved]
  - Anterior chamber cell [Recovered/Resolved]

NARRATIVE: CASE EVENT DATE: 20210924
